FAERS Safety Report 11314456 (Version 1)
Quarter: 2015Q3

REPORT INFORMATION
  Report Type: Spontaneous
  Country: CN (occurrence: CN)
  Receive Date: 20150727
  Receipt Date: 20150727
  Transmission Date: 20151125
  Serious: Yes (Congenital Anomaly)
  Sender: FDA-Public Use
  Company Number: CN-AMEDRA PHARMACEUTICALS LLC-2015AMD00151

PATIENT

DRUGS (1)
  1. ZENTEL [Suspect]
     Active Substance: ALBENDAZOLE
     Dosage: UNK UNK, ONCE
     Route: 064
     Dates: start: 20141013, end: 20141013

REACTIONS (2)
  - Foetal exposure during pregnancy [Unknown]
  - Heart disease congenital [Not Recovered/Not Resolved]

NARRATIVE: CASE EVENT DATE: 20141013
